FAERS Safety Report 11767214 (Version 1)
Quarter: 2015Q4

REPORT INFORMATION
  Report Type: Spontaneous
  Country: US (occurrence: US)
  Receive Date: 20151123
  Receipt Date: 20151123
  Transmission Date: 20160304
  Serious: No
  Sender: FDA-Public Use
  Company Number: US-PFIZER INC-2015387095

PATIENT
  Sex: Female

DRUGS (2)
  1. LYRICA [Suspect]
     Active Substance: PREGABALIN
     Dosage: SOMETIMES ONLY TOOK 2 (A DAY)
  2. LYRICA [Suspect]
     Active Substance: PREGABALIN
     Dosage: 3/DAY

REACTIONS (3)
  - Peripheral swelling [Unknown]
  - Musculoskeletal disorder [Unknown]
  - Depression [Unknown]
